FAERS Safety Report 7210269-6 (Version None)
Quarter: 2011Q1

REPORT INFORMATION
  Report Type: 
  Country: None (occurrence: None)
  Receive Date: 20110105
  Receipt Date: 20101227
  Transmission Date: 20110831
  Serious: Yes (Other)
  Sender: FDA-Public Use
  Company Number: DE-PFIZER INC-2010144445

PATIENT
  Age: 16 Year
  Sex: Male

DRUGS (3)
  1. TREVILOR RETARD [Suspect]
     Dosage: 375 MG, UNK
     Dates: start: 20100401
  2. TREVILOR RETARD [Suspect]
     Dosage: 225 MG, UNK
     Dates: start: 20090101
  3. TREVILOR RETARD [Suspect]
     Dosage: 300 MG, UNK
     Dates: end: 20100401

REACTIONS (1)
  - SOMATOFORM DISORDER [None]
